FAERS Safety Report 8612616 (Version 3)
Quarter: 2014Q1

REPORT INFORMATION
  Report Type: Report from Study
  Country: CA (occurrence: CA)
  Receive Date: 20120613
  Receipt Date: 20140122
  Transmission Date: 20141002
  Serious: Yes (Hospitalization, Other)
  Sender: FDA-Public Use
  Company Number: CA-PFIZER INC-2012136156

PATIENT
  Age: 59 Year
  Sex: Male
  Weight: 70 kg

DRUGS (5)
  1. AXITINIB [Suspect]
     Indication: RENAL CANCER METASTATIC
     Dosage: 5 MG, 2X/DAY
     Route: 048
     Dates: start: 20120516
  2. ALLOPURINOL [Concomitant]
     Dosage: UNK
  3. ZANTAC [Concomitant]
     Dosage: UNK
  4. DENOSUMAB [Concomitant]
     Dosage: 120 MG, MONTHLY
     Dates: start: 201204
  5. HYDROMORPH CONTIN [Concomitant]
     Dosage: UNK
     Dates: start: 201205

REACTIONS (1)
  - Cardiac failure congestive [Recovered/Resolved]
